FAERS Safety Report 23338335 (Version 1)
Quarter: 2023Q4

REPORT INFORMATION
  Report Type: Spontaneous
  Country: US (occurrence: None)
  Receive Date: 20231224
  Receipt Date: 20231224
  Transmission Date: 20240110
  Serious: Yes (Other)
  Sender: FDA-Public Use
  Company Number: None

PATIENT
  Age: 71 Year
  Sex: Female
  Weight: 74.25 kg

DRUGS (3)
  1. DUPIXENT [Suspect]
     Active Substance: DUPILUMAB
     Indication: Eczema
     Dates: start: 20230921, end: 20231104
  2. Levithroid [Concomitant]
  3. CLARITIN [Concomitant]
     Active Substance: LORATADINE

REACTIONS (13)
  - Eye discharge [None]
  - Eyelid margin crusting [None]
  - Ocular hyperaemia [None]
  - Ocular hyperaemia [None]
  - Nervousness [None]
  - Conjunctivitis [None]
  - Oral herpes [None]
  - Oral herpes [None]
  - Eye pain [None]
  - Eye pruritus [None]
  - Eye swelling [None]
  - Head titubation [None]
  - Tremor [None]

NARRATIVE: CASE EVENT DATE: 20231104
